FAERS Safety Report 7807222-8 (Version None)
Quarter: 2011Q4

REPORT INFORMATION
  Report Type: 
  Country: None (occurrence: None)
  Receive Date: 20111011
  Receipt Date: 20111003
  Transmission Date: 20120403
  Serious: Yes (Hospitalization)
  Sender: FDA-Public Use
  Company Number: PHEH2011US05767

PATIENT
  Age: 57 Year
  Sex: Male

DRUGS (1)
  1. TOBI [Suspect]
     Dosage: 300 MG, TWICE A DAY VIA NEBULIZER INA CYCLE OF 28 DAYS ON AND 28 DAYS OFF
     Dates: start: 20091125

REACTIONS (1)
  - UPPER RESPIRATORY TRACT INFECTION [None]
